FAERS Safety Report 12929204 (Version 3)
Quarter: 2016Q4

REPORT INFORMATION
  Report Type: Spontaneous
  Country: US (occurrence: US)
  Receive Date: 20161110
  Receipt Date: 20161130
  Transmission Date: 20170207
  Serious: No
  Sender: FDA-Public Use
  Company Number: US-PFIZER INC-2016521666

PATIENT
  Age: 59 Year
  Sex: Female

DRUGS (4)
  1. METHOCARBAMOL. [Suspect]
     Active Substance: METHOCARBAMOL
     Dosage: 2250 MG, DAILY (HALF IN THE MORNING, HALF IN THE AFTERNOON, AND TWO AT NIGHT)
  2. METHOCARBAMOL. [Suspect]
     Active Substance: METHOCARBAMOL
     Indication: MUSCLE RELAXANT THERAPY
     Dosage: 1500 MG, 3X/DAY (750 MG, TWO TABLETS THREE TIMES A DAY)
  3. LYRICA [Suspect]
     Active Substance: PREGABALIN
     Dosage: 100 MG, 3X/DAY
     Route: 048
  4. LYRICA [Suspect]
     Active Substance: PREGABALIN
     Indication: FIBROMYALGIA
     Dosage: 50 MG, 1X/DAY
     Route: 048

REACTIONS (3)
  - Product use issue [Unknown]
  - Malaise [Unknown]
  - Somnolence [Unknown]
